FAERS Safety Report 9804588 (Version 2)
Quarter: 2014Q1

REPORT INFORMATION
  Report Type: Report from Study
  Country: ES (occurrence: ES)
  Receive Date: 20140108
  Receipt Date: 20140123
  Transmission Date: 20141002
  Serious: Yes (Hospitalization, Other)
  Sender: FDA-Public Use
  Company Number: ES-ABBVIE-14P-144-1186950-00

PATIENT
  Age: 41 Year
  Sex: Female
  Weight: 55 kg

DRUGS (6)
  1. HUMIRA [Suspect]
     Indication: CROHN^S DISEASE
     Dosage: BASELINE
     Route: 058
     Dates: start: 20090303, end: 20090303
  2. HUMIRA [Suspect]
     Dosage: WEEK 2
     Route: 058
  3. HUMIRA [Suspect]
     Route: 058
  4. AZATHIOPRINE [Concomitant]
     Indication: INFLAMMATORY BOWEL DISEASE
     Route: 048
     Dates: start: 20080801, end: 20101202
  5. AZATHIOPRINE [Concomitant]
     Indication: CROHN^S DISEASE
     Route: 048
  6. BENEXOL B12 [Concomitant]
     Indication: VITAMIN B12 DECREASED

REACTIONS (2)
  - Crohn^s disease [Recovered/Resolved]
  - Ectopic pregnancy [Unknown]
